FAERS Safety Report 4557102-9 (Version None)
Quarter: 2005Q1

REPORT INFORMATION
  Report Type: 
  Country: None (occurrence: None)
  Receive Date: 20050118
  Receipt Date: 20050105
  Transmission Date: 20050727
  Serious: No
  Sender: FDA-Public Use
  Company Number: 2005GB00049

PATIENT
  Age: 84 Year
  Sex: Male

DRUGS (1)
  1. ZOLADEX [Suspect]
     Indication: PROSTATE CANCER
     Dosage: 10.8 MG DAILY IM
     Route: 030

REACTIONS (3)
  - PARANOIA [None]
  - PERSECUTORY DELUSION [None]
  - PSYCHOTIC DISORDER [None]
